FAERS Safety Report 11116212 (Version 1)
Quarter: 2015Q2

REPORT INFORMATION
  Report Type: Spontaneous
  Country: US (occurrence: None)
  Receive Date: 20150514
  Receipt Date: 20150514
  Transmission Date: 20150821
  Serious: Yes (Hospitalization)
  Sender: FDA-Public Use
  Company Number: None

PATIENT
  Age: 46 Year
  Sex: Male
  Weight: 78.9 kg

DRUGS (2)
  1. TOPIRAMATE. [Suspect]
     Active Substance: TOPIRAMATE
     Indication: DELIRIUM
     Route: 048
     Dates: start: 20140920, end: 20150209
  2. TOPIRAMATE. [Suspect]
     Active Substance: TOPIRAMATE
     Indication: CONFUSIONAL STATE
     Route: 048
     Dates: start: 20140920, end: 20150209

REACTIONS (2)
  - Confusional state [None]
  - Delirium [None]

NARRATIVE: CASE EVENT DATE: 20150206
